FAERS Safety Report 8405292-X (Version None)
Quarter: 2012Q2

REPORT INFORMATION
  Report Type: 
  Country: None (occurrence: None)
  Receive Date: 20120603
  Receipt Date: 20120523
  Transmission Date: 20120825
  Serious: Yes (Death)
  Sender: FDA-Public Use
  Company Number: DE-AMGEN-DEUSP2012033611

PATIENT
  Age: 80 Year
  Sex: Male

DRUGS (9)
  1. ENBREL [Suspect]
     Indication: RHEUMATOID ARTHRITIS
     Dosage: 50 MG, WEEKLY
     Route: 058
     Dates: start: 20100604, end: 20120509
  2. ALLOPURINOL [Concomitant]
     Dosage: UNK
  3. METOPROLOL TARTRATE [Concomitant]
     Dosage: 25 MG, UNK
  4. ASPIRIN [Concomitant]
     Dosage: 100 MG, UNK
  5. PANTOPRAZOLE [Concomitant]
     Dosage: UNK
  6. MOLSIDOMINE [Concomitant]
     Dosage: 8 MG, UNK
  7. ISONIAZID [Concomitant]
     Dosage: UNK
  8. TRIAMTEREN [Concomitant]
     Dosage: UNK
  9. METAMIZOLE [Concomitant]
     Dosage: 15 GTT, UNK

REACTIONS (1)
  - MYOCARDIAL INFARCTION [None]
